FAERS Safety Report 24979771 (Version 1)
Quarter: 2025Q1

REPORT INFORMATION
  Report Type: Spontaneous
  Country: US (occurrence: US)
  Receive Date: 20250218
  Receipt Date: 20250218
  Transmission Date: 20250408
  Serious: Yes (Other)
  Sender: ALKEM
  Company Number: US-ALKEM LABORATORIES LIMITED-US-ALKEM-2025-01518

PATIENT
  Age: 15 Year
  Sex: Male

DRUGS (4)
  1. OLANZAPINE [Interacting]
     Active Substance: OLANZAPINE
     Indication: Product used for unknown indication
     Route: 065
  2. KLONOPIN [Interacting]
     Active Substance: CLONAZEPAM
     Indication: Product used for unknown indication
     Route: 065
  3. WELLBUTRIN XL [Interacting]
     Active Substance: BUPROPION HYDROCHLORIDE
     Indication: Product used for unknown indication
     Route: 065
  4. CLONIDINE [Concomitant]
     Active Substance: CLONIDINE
     Indication: Product used for unknown indication
     Route: 065

REACTIONS (11)
  - Blindness [Unknown]
  - Blindness transient [Unknown]
  - Eye inflammation [Unknown]
  - Eye irritation [Unknown]
  - Eye pain [Unknown]
  - Papilloedema [Unknown]
  - Photophobia [Unknown]
  - Visual impairment [Unknown]
  - Drug interaction [Unknown]
  - Drug ineffective [Unknown]
  - Product dispensing error [Unknown]
